FAERS Safety Report 6192215-X (Version None)
Quarter: 2009Q2

REPORT INFORMATION
  Report Type: 
  Country: None (occurrence: None)
  Receive Date: 20090515
  Receipt Date: 20090515
  Transmission Date: 20091009
  Serious: Yes (Hospitalization)
  Sender: FDA-Public Use
  Company Number: US-ROXANE LABORATORIES, INC.-2009-RO-00503RO

PATIENT
  Age: 15 Month
  Sex: Male

DRUGS (12)
  1. MERCAPTOPURINE [Suspect]
     Indication: ACUTE LYMPHOCYTIC LEUKAEMIA
     Route: 048
     Dates: start: 20080809
  2. CYCLOPHOSPHAMIDE [Suspect]
     Indication: ACUTE LYMPHOCYTIC LEUKAEMIA
     Dates: start: 20080809
  3. LESTAURTINIB [Suspect]
     Indication: ACUTE LYMPHOCYTIC LEUKAEMIA
     Route: 048
     Dates: start: 20080809
  4. METHOTREXATE W/CYTARABINE AND HYDROCORTISONE [Suspect]
     Indication: ACUTE LYMPHOCYTIC LEUKAEMIA
     Route: 037
     Dates: start: 20080809
  5. METHOTREXATE [Suspect]
     Indication: ACUTE LYMPHOCYTIC LEUKAEMIA
     Route: 042
     Dates: start: 20080809
  6. ETOPOSIDE [Suspect]
     Indication: ACUTE LYMPHOCYTIC LEUKAEMIA
     Dates: start: 20080809
  7. CYTARABINE [Suspect]
     Dates: start: 20080809
  8. VINCRISTINE [Concomitant]
     Indication: ACUTE LYMPHOCYTIC LEUKAEMIA
     Route: 042
     Dates: start: 20080809
  9. DEXAMETHASONE 4MG TAB [Concomitant]
     Indication: ACUTE LYMPHOCYTIC LEUKAEMIA
  10. MESNA [Concomitant]
     Route: 042
     Dates: start: 20080809
  11. FILGRASTIM [Concomitant]
     Dates: start: 20080809
  12. PEG-ASPARAGINASE [Concomitant]
     Dates: start: 20080809

REACTIONS (2)
  - HYPOKALAEMIA [None]
  - LACTOBACILLUS INFECTION [None]
